FAERS Safety Report 16895370 (Version 1)
Quarter: 2019Q4

REPORT INFORMATION
  Report Type: Spontaneous
  Country: US (occurrence: US)
  Receive Date: 20191007
  Receipt Date: 20191007
  Transmission Date: 20200122
  Serious: Yes (Hospitalization)
  Sender: FDA-Public Use
  Company Number: None

PATIENT
  Age: 6 Year
  Sex: Female

DRUGS (6)
  1. POLYMYXIN B/SOL TRIMETHP [Concomitant]
  2. LORAZEPAM. [Concomitant]
     Active Substance: LORAZEPAM
  3. IBRANCE [Suspect]
     Active Substance: PALBOCICLIB
     Indication: NEOPLASM MALIGNANT
     Route: 048
     Dates: start: 20190731
  4. NEUPOGEN [Suspect]
     Active Substance: FILGRASTIM
     Indication: NEOPLASM MALIGNANT
     Route: 058
     Dates: start: 20160617
  5. MEGESTROL [Concomitant]
     Active Substance: MEGESTROL
  6. SULFATRIM PD [Concomitant]

REACTIONS (2)
  - Pyrexia [None]
  - Therapy cessation [None]
